FAERS Safety Report 17016360 (Version 1)
Quarter: 2019Q4

REPORT INFORMATION
  Report Type: Spontaneous
  Country: US (occurrence: US)
  Receive Date: 20191111
  Receipt Date: 20191111
  Transmission Date: 20200122
  Serious: Yes (Death, Hospitalization)
  Sender: FDA-Public Use
  Company Number: NVSC2019US028380

PATIENT
  Age: 6 Year
  Sex: Female
  Weight: 22 kg

DRUGS (4)
  1. PEG/L-ASPARAGINASE [Concomitant]
     Active Substance: PEGASPARGASE
     Indication: CHEMOTHERAPY
     Dosage: EVERY FEW WEEKS
     Route: 042
  2. DEXAMETHASONE. [Concomitant]
     Active Substance: DEXAMETHASONE
     Indication: PALLIATIVE CARE
     Dosage: OCCASIONAL PULSES
     Route: 065
  3. METHOTREXATE. [Concomitant]
     Active Substance: METHOTREXATE
     Indication: CHEMOTHERAPY
     Route: 048
  4. KYMRIAH [Suspect]
     Active Substance: TISAGENLECLEUCEL
     Indication: B-CELL LYMPHOMA RECURRENT
     Dosage: UNK, ONCE/SINGLE
     Route: 042
     Dates: start: 20180409, end: 20180409

REACTIONS (6)
  - Respiratory disorder [Fatal]
  - Respiratory arrest [Fatal]
  - Oxygen saturation decreased [Fatal]
  - B-cell lymphoma recurrent [Fatal]
  - Malignant neoplasm progression [Fatal]
  - Pneumonia [Fatal]

NARRATIVE: CASE EVENT DATE: 20191007
